FAERS Safety Report 5339420-X (Version None)
Quarter: 2007Q2

REPORT INFORMATION
  Report Type: 
  Country: None (occurrence: None)
  Receive Date: 20070404
  Receipt Date: 20060830
  Transmission Date: 20071010
  Serious: Yes (Other)
  Sender: FDA-Public Use
  Company Number: 2006083644

PATIENT
  Age: 24 Year
  Sex: Male

DRUGS (2)
  1. GEODON [Suspect]
     Indication: OBSESSIVE-COMPULSIVE DISORDER
     Dosage: 40 MG, ORAL
     Route: 048
  2. LUVOX [Concomitant]

REACTIONS (2)
  - DYSPHAGIA [None]
  - SWOLLEN TONGUE [None]
